FAERS Safety Report 8926784 (Version 2)
Quarter: 2012Q4

REPORT INFORMATION
  Report Type: 
  Country: NO (occurrence: NO)
  Receive Date: 20121127
  Receipt Date: 20121203
  Transmission Date: 20130627
  Serious: Yes (Other)
  Sender: FDA-Public Use
  Company Number: NO-TEVA-370873ISR

PATIENT
  Age: 50 Year
  Sex: Female

DRUGS (2)
  1. METHOTREXATE SODIUM [Suspect]
     Indication: RHEUMATOID ARTHRITIS
     Dates: start: 201203, end: 201208
  2. METHOTREXATE SODIUM [Suspect]
     Dates: start: 201208

REACTIONS (2)
  - Cognitive disorder [Unknown]
  - Memory impairment [Unknown]
